FAERS Safety Report 6277169-X (Version None)
Quarter: 2009Q3

REPORT INFORMATION
  Report Type: 
  Country: None (occurrence: None)
  Receive Date: 20090722
  Receipt Date: 20090202
  Transmission Date: 20100115
  Serious: Yes (Hospitalization, Other)
  Sender: FDA-Public Use
  Company Number: US-BRISTOL-MYERS SQUIBB COMPANY-14491039

PATIENT
  Age: 22 Year
  Sex: Female

DRUGS (2)
  1. COUMADIN [Suspect]
     Dosage: DOSE WAS INCREASED TO 7 MG ON AN UNKNOWN DATE IN JAN 2009
     Route: 048
     Dates: start: 20081215, end: 20090113
  2. LOVENOX [Suspect]
     Indication: THROMBOSIS
     Dates: start: 20080701, end: 20090116

REACTIONS (2)
  - ABDOMINAL PAIN [None]
  - VAGINAL HAEMORRHAGE [None]
